FAERS Safety Report 10728064 (Version 1)
Quarter: 2015Q1

REPORT INFORMATION
  Report Type: Spontaneous
  Country: DE (occurrence: DE)
  Receive Date: 20150121
  Receipt Date: 20150121
  Transmission Date: 20150721
  Serious: Yes (Disabling)
  Sender: FDA-Public Use
  Company Number: DE-PFIZER INC-2014321731

PATIENT
  Age: 70 Year
  Sex: Male
  Weight: 57.5 kg

DRUGS (16)
  1. LONOLOX [Suspect]
     Active Substance: MINOXIDIL
     Indication: HYPERTENSION
     Dosage: 10 MG, (^2X 1 TABLET^)
     Route: 048
     Dates: start: 20141107
  2. NEPHROTRANS [Concomitant]
     Dosage: 840 MG, 3X/DAY
  3. DECOSTRIOL 0,25 ?G [Concomitant]
     Dosage: 0.25 ?G, UNK
  4. LONOLOX [Suspect]
     Active Substance: MINOXIDIL
     Indication: DIALYSIS
  5. NOVORAPID [Concomitant]
     Active Substance: INSULIN ASPART
     Dosage: 5 AT LUNCHTIME
  6. PANTOPRAZOLE [Concomitant]
     Active Substance: PANTOPRAZOLE SODIUM
     Dosage: 1 DF, DAILY, 3X/WEEK
  7. TELMISARTAN 1A PHARMA [Concomitant]
     Dosage: 40 MG, 2X/DAY
  8. TORASEMID 1A PHARMA [Concomitant]
     Dosage: 200 MG, ^1X HDFR PER DAY^
  9. KREON 40000 [Concomitant]
     Active Substance: PANCRELIPASE
     Dosage: 2 DF, 2X/DAY
  10. CALCET [Concomitant]
     Dosage: 950 MG, 3X/DAY
  11. LONOLOX [Concomitant]
     Active Substance: MINOXIDIL
  12. RENAVIT [Concomitant]
     Dosage: UNK, 1X/DAY
  13. ZOPICLON [Concomitant]
     Active Substance: ZOPICLONE
     Dosage: 1/2- 1 AT NIGHT, OR ADUMBRAN
  14. ADUMBRAN [Concomitant]
  15. LANTUS [Concomitant]
     Active Substance: INSULIN GLARGINE
  16. KREON 25.000 [Concomitant]
     Active Substance: PANCRELIPASE
     Dosage: UNK, 2X/DAY

REACTIONS (6)
  - Dysuria [Unknown]
  - Psoriasis [Unknown]
  - Dyspnoea [Unknown]
  - Sleep disorder [Unknown]
  - Eye pain [Unknown]
  - Intraocular pressure increased [Not Recovered/Not Resolved]

NARRATIVE: CASE EVENT DATE: 20141107
